FAERS Safety Report 25460094 (Version 1)
Quarter: 2025Q2

REPORT INFORMATION
  Report Type: Spontaneous
  Country: BR (occurrence: BR)
  Receive Date: 20250620
  Receipt Date: 20250620
  Transmission Date: 20250717
  Serious: Yes (Other)
  Sender: NOVARTIS
  Company Number: BR-002147023-NVSC2025BR097276

PATIENT
  Sex: Female

DRUGS (8)
  1. ASCIMINIB [Suspect]
     Active Substance: ASCIMINIB
     Indication: Foetal exposure during pregnancy
     Route: 064
  2. IMATINIB [Suspect]
     Active Substance: IMATINIB
     Indication: Foetal exposure during pregnancy
     Route: 064
  3. DASATINIB [Suspect]
     Active Substance: DASATINIB
     Indication: Foetal exposure during pregnancy
     Route: 064
  4. ETHINYL ESTRADIOL\GESTODENE [Suspect]
     Active Substance: ETHINYL ESTRADIOL\GESTODENE
     Indication: Foetal exposure during pregnancy
     Route: 064
  5. METHYLDOPA [Suspect]
     Active Substance: METHYLDOPA
     Indication: Foetal exposure during pregnancy
     Route: 064
  6. ASPIRIN [Suspect]
     Active Substance: ASPIRIN
     Indication: Foetal exposure during pregnancy
     Route: 064
  7. CALCIUM CARBONATE [Suspect]
     Active Substance: CALCIUM CARBONATE
     Indication: Foetal exposure during pregnancy
     Route: 064
  8. VITAMIN D [Suspect]
     Active Substance: VITAMIN D NOS
     Indication: Foetal exposure during pregnancy
     Route: 064

REACTIONS (3)
  - Premature baby [Unknown]
  - Foetal exposure during pregnancy [Unknown]
  - Low birth weight baby [Unknown]
